FAERS Safety Report 24551407 (Version 1)
Quarter: 2024Q4

REPORT INFORMATION
  Report Type: Spontaneous
  Country: US (occurrence: US)
  Receive Date: 20241026
  Receipt Date: 20241026
  Transmission Date: 20250115
  Serious: No
  Sender: ALEXION PHARMACEUTICALS
  Company Number: US-AstraZeneca-CH-00718517A

PATIENT

DRUGS (4)
  1. TRUQAP [Suspect]
     Active Substance: CAPIVASERTIB
     Indication: HER2 positive breast cancer
     Dosage: 400 MILLIGRAM, INTERMITTENT
  2. TRUQAP [Suspect]
     Active Substance: CAPIVASERTIB
     Dosage: 400 MILLIGRAM, INTERMITTENT
  3. TRUQAP [Suspect]
     Active Substance: CAPIVASERTIB
     Dosage: 400 MILLIGRAM, INTERMITTENT
  4. TRUQAP [Suspect]
     Active Substance: CAPIVASERTIB
     Dosage: 400 MILLIGRAM, INTERMITTENT

REACTIONS (3)
  - Rash [Unknown]
  - Oral disorder [Unknown]
  - Blood creatinine increased [Unknown]
